FAERS Safety Report 16733957 (Version 1)
Quarter: 2019Q3

REPORT INFORMATION
  Report Type: Report from Study
  Country: TW (occurrence: TW)
  Receive Date: 20190823
  Receipt Date: 20190823
  Transmission Date: 20191005
  Serious: Yes (Other)
  Sender: FDA-Public Use
  Company Number: TW-AMGEN-TWNSL2019131175

PATIENT
  Sex: Female

DRUGS (1)
  1. PROLIA [Suspect]
     Active Substance: DENOSUMAB
     Indication: PRODUCT USED FOR UNKNOWN INDICATION
     Dosage: 60 MILLIGRAM, Q6MO
     Route: 065

REACTIONS (7)
  - Tooth loss [Unknown]
  - Insomnia [Unknown]
  - Gingival abscess [Unknown]
  - Dental caries [Unknown]
  - Hypoaesthesia oral [Unknown]
  - Anxiety [Unknown]
  - Tooth fracture [Unknown]

NARRATIVE: CASE EVENT DATE: 201904
